FAERS Safety Report 11340084 (Version 1)
Quarter: 2015Q3

REPORT INFORMATION
  Report Type: Spontaneous
  Country: FR (occurrence: FR)
  Receive Date: 20150805
  Receipt Date: 20150805
  Transmission Date: 20151125
  Serious: Yes (Hospitalization)
  Sender: FDA-Public Use
  Company Number: FR-EMCURE-000822

PATIENT
  Age: 52 Year
  Sex: Female

DRUGS (7)
  1. KEPPRA [Concomitant]
     Active Substance: LEVETIRACETAM
  2. INEXIUM [Concomitant]
     Active Substance: ESOMEPRAZOLE
  3. ZOPICLONE [Concomitant]
     Active Substance: ZOPICLONE
  4. BICNU [Suspect]
     Active Substance: CARMUSTINE
     Indication: PRODUCT USED FOR UNKNOWN INDICATION
     Dosage: AT ONCE
     Route: 042
     Dates: start: 20150225, end: 20150225
  5. MEDROL [Concomitant]
     Active Substance: METHYLPREDNISOLONE
  6. DEPAKINE CHRONO [Concomitant]
     Active Substance: VALPROATE SODIUM
  7. VOGALENE [Concomitant]
     Active Substance: METOPIMAZINE
     Indication: NAUSEA

REACTIONS (2)
  - Agranulocytosis [Recovered/Resolved]
  - Thrombocytopenia [Recovering/Resolving]

NARRATIVE: CASE EVENT DATE: 20150403
